FAERS Safety Report 18684436 (Version 1)
Quarter: 2020Q4

REPORT INFORMATION
  Report Type: Report from Study
  Country: MX (occurrence: MX)
  Receive Date: 20201230
  Receipt Date: 20201230
  Transmission Date: 20210114
  Serious: Yes (Other)
  Sender: FDA-Public Use
  Company Number: NVSC2020MX342677

PATIENT
  Sex: Male
  Weight: 112 kg

DRUGS (8)
  1. REVOLADE [Suspect]
     Active Substance: ELTROMBOPAG
     Indication: PROPHYLAXIS
     Dosage: 1 DF, QD
     Route: 048
     Dates: start: 20200921
  2. REVOLADE [Suspect]
     Active Substance: ELTROMBOPAG
     Dosage: 3 DF, QD
     Route: 048
     Dates: start: 20201123
  3. SANDIMMUN NEORAL [Suspect]
     Active Substance: CYCLOSPORINE
     Indication: PROPHYLAXIS
     Dosage: 2 DF, QD
     Route: 048
     Dates: start: 20201123
  4. SERTEX [Concomitant]
     Indication: EPILEPSY
     Dosage: 2 DF, QD (AT THE AFTERNNOON)
     Route: 048
     Dates: start: 202009
  5. REVOLADE [Suspect]
     Active Substance: ELTROMBOPAG
     Dosage: 1.5 DF, QD
     Route: 048
     Dates: end: 20201123
  6. METICORTEN [Concomitant]
     Active Substance: PREDNISONE
     Indication: RELAXATION THERAPY
     Dosage: 1 DF, QD
     Route: 048
     Dates: start: 202009
  7. QUETIAPINE. [Concomitant]
     Active Substance: QUETIAPINE
     Indication: RELAXATION THERAPY
     Dosage: 2 DF, QD (AT NIGHT)
     Route: 048
     Dates: start: 202009
  8. KEPPRA [Concomitant]
     Active Substance: LEVETIRACETAM
     Indication: EPILEPSY
     Dosage: 2 DF, BID (IN THE MORNING AND AT NIGHT)
     Route: 048
     Dates: start: 202009

REACTIONS (3)
  - Bacterial test positive [Unknown]
  - Wrong technique in product usage process [Unknown]
  - Product prescribing error [Unknown]
